FAERS Safety Report 5321032-5 (Version None)
Quarter: 2007Q2

REPORT INFORMATION
  Report Type: 
  Country: None (occurrence: None)
  Receive Date: 20070215
  Receipt Date: 20061030
  Transmission Date: 20071010
  Serious: No
  Sender: FDA-Public Use
  Company Number: 200614109BWH

PATIENT
  Age: 65 Year
  Sex: Male
  Weight: 98.4306 kg

DRUGS (8)
  1. NEXAVAR [Suspect]
     Indication: RENAL CANCER METASTATIC
     Dosage: SEE IMAGE
     Route: 048
     Dates: start: 20060531, end: 20060613
  2. NEXAVAR [Suspect]
     Indication: RENAL CANCER METASTATIC
     Dosage: SEE IMAGE
     Route: 048
     Dates: start: 20060711, end: 20060731
  3. ALLOPURINOL [Suspect]
     Indication: RASH
  4. BACTRIM [Suspect]
     Indication: RASH
  5. ASPIRIN [Concomitant]
  6. INHALER (NOS) [Concomitant]
  7. ALEVE [Concomitant]
  8. ANTIOXIDANT PACK (NOS) [Concomitant]

REACTIONS (24)
  - ALOPECIA [None]
  - BLOOD URIC ACID INCREASED [None]
  - CHOLELITHIASIS [None]
  - CHONDROCALCINOSIS [None]
  - CHONDROCALCINOSIS PYROPHOSPHATE [None]
  - DRY MOUTH [None]
  - DYSGEUSIA [None]
  - EPIGASTRIC DISCOMFORT [None]
  - ERYTHEMA [None]
  - EXCORIATION [None]
  - FATIGUE [None]
  - GAIT DISTURBANCE [None]
  - HAIR GROWTH ABNORMAL [None]
  - HAIR TEXTURE ABNORMAL [None]
  - HEPATIC STEATOSIS [None]
  - NEUROPATHY PERIPHERAL [None]
  - PAIN [None]
  - PAIN IN EXTREMITY [None]
  - PRURITUS [None]
  - RASH ERYTHEMATOUS [None]
  - RASH GENERALISED [None]
  - RENAL MASS [None]
  - SKIN DISCOLOURATION [None]
  - TEMPERATURE REGULATION DISORDER [None]
